FAERS Safety Report 10095593 (Version 2)
Quarter: 2014Q2

REPORT INFORMATION
  Report Type: Report from Study
  Country: US (occurrence: US)
  Receive Date: 20140422
  Receipt Date: 20140602
  Transmission Date: 20141212
  Serious: Yes (Hospitalization, Other)
  Sender: FDA-Public Use
  Company Number: US-SA-2014SA046760

PATIENT
  Age: 63 Year
  Sex: Female

DRUGS (4)
  1. LANTUS [Suspect]
     Indication: DIABETES MELLITUS
     Dosage: DOSE:50 UNIT(S)
     Route: 065
     Dates: start: 1994
  2. METFORMIN [Suspect]
     Indication: DIABETES MELLITUS
     Route: 065
     Dates: start: 1994
  3. COUMADIN [Concomitant]
     Indication: PROPHYLAXIS
     Dates: start: 2003
  4. LOVENOX [Concomitant]

REACTIONS (4)
  - Cardiac operation [Recovered/Resolved]
  - Haemorrhage [Unknown]
  - Anaemia [Recovered/Resolved]
  - Tooth extraction [Unknown]
